FAERS Safety Report 11265944 (Version 1)
Quarter: 2015Q3

REPORT INFORMATION
  Report Type: Spontaneous
  Country: US (occurrence: US)
  Receive Date: 20150713
  Receipt Date: 20150713
  Transmission Date: 20151125
  Serious: Yes (Hospitalization)
  Sender: FDA-Public Use
  Company Number: US-MPIJNJ-2012-08763

PATIENT
  Sex: Male

DRUGS (5)
  1. THALIDOMIDE [Suspect]
     Active Substance: THALIDOMIDE
     Indication: PRODUCT USED FOR UNKNOWN INDICATION
     Dosage: UNK
  2. DEXAMETHASONE. [Suspect]
     Active Substance: DEXAMETHASONE
     Indication: PLASMA CELL MYELOMA
     Dosage: UNK, 1/WEEK
     Route: 048
     Dates: start: 200911, end: 201211
  3. REVLIMID [Suspect]
     Active Substance: LENALIDOMIDE
     Indication: PLASMA CELL MYELOMA
     Dosage: UNK, CYCLIC
     Route: 048
     Dates: start: 200911, end: 201211
  4. VELCADE [Suspect]
     Active Substance: BORTEZOMIB
     Indication: PLASMA CELL MYELOMA
     Dosage: 2 MG, 1/WEEK
     Route: 042
     Dates: start: 200911, end: 201211
  5. LOVENOX [Suspect]
     Active Substance: ENOXAPARIN SODIUM
     Indication: PRODUCT USED FOR UNKNOWN INDICATION

REACTIONS (12)
  - White blood cell count decreased [Unknown]
  - Pulmonary embolism [Unknown]
  - Insomnia [Unknown]
  - Nasopharyngitis [Unknown]
  - Influenza [Unknown]
  - Anaemia [Unknown]
  - Rhinorrhoea [Unknown]
  - Platelet count decreased [Unknown]
  - Neuropathy peripheral [Unknown]
  - Thrombosis [Unknown]
  - Weight increased [Unknown]
  - Mood swings [Unknown]
